FAERS Safety Report 23183658 (Version 1)
Quarter: 2023Q4

REPORT INFORMATION
  Report Type: Other
  Country: None (occurrence: AU)
  Receive Date: 20231114
  Receipt Date: 20231114
  Transmission Date: 20240110
  Serious: Yes (Life-Threatening)
  Sender: FDA-Public Use
  Company Number: AU-ALSI-2023000233

PATIENT
  Sex: Female

DRUGS (2)
  1. OXYGEN [Suspect]
     Active Substance: OXYGEN
     Indication: Bronchoscopy
     Route: 055
  2. PROPOFOL [Concomitant]
     Active Substance: PROPOFOL
     Route: 042

REACTIONS (1)
  - Hypercapnia [Recovered/Resolved]
